FAERS Safety Report 9617355 (Version 1)
Quarter: 2013Q4

REPORT INFORMATION
  Report Type: Spontaneous
  Country: IT (occurrence: IT)
  Receive Date: 20131011
  Receipt Date: 20131011
  Transmission Date: 20140711
  Serious: Yes (Other)
  Sender: FDA-Public Use
  Company Number: IT-TEVA-436903ISR

PATIENT
  Age: 64 Year
  Sex: Female
  Weight: 50 kg

DRUGS (3)
  1. PACLITAXEL [Suspect]
     Indication: UTERINE CANCER
     Dosage: CONCENTRATE FOR SOLUTION FOR INTRAVENOUS INFUSION
     Route: 042
     Dates: start: 20130404, end: 20130910
  2. DOXORUBICINA CLORIDRATO [Suspect]
     Indication: UTERINE CANCER
     Dosage: CONCENTRATE FOR SOLUTION FOR INTRAVENOUS INFUSION
     Route: 042
     Dates: start: 20130404, end: 20130910
  3. CISPLATINO [Suspect]
     Indication: UTERINE CANCER
     Dosage: CONCENTRATE FOR SOLUTION FOR INTRAVENOUS INFUSION
     Route: 042
     Dates: start: 20130404, end: 20130910

REACTIONS (3)
  - Hyperpyrexia [Recovering/Resolving]
  - Stomatitis [Recovering/Resolving]
  - Off label use [Unknown]
